FAERS Safety Report 11759022 (Version 1)
Quarter: 2015Q4

REPORT INFORMATION
  Report Type: Spontaneous
  Country: US (occurrence: US)
  Receive Date: 20151120
  Receipt Date: 20151120
  Transmission Date: 20160304
  Serious: No
  Sender: FDA-Public Use
  Company Number: US-ELI_LILLY_AND_COMPANY-US201209007505

PATIENT
  Age: 51 Year
  Sex: Female

DRUGS (1)
  1. FORTEO [Suspect]
     Active Substance: TERIPARATIDE
     Indication: OSTEOPOROSIS
     Dosage: 20 UG, QD
     Route: 065
     Dates: start: 20120922, end: 20120923

REACTIONS (7)
  - Nausea [Unknown]
  - Hyperhidrosis [Unknown]
  - Influenza like illness [Unknown]
  - Skin warm [Unknown]
  - Pyrexia [Unknown]
  - Feeling of body temperature change [Unknown]
  - Rash erythematous [Unknown]

NARRATIVE: CASE EVENT DATE: 20120922
